FAERS Safety Report 9413142 (Version 1)
Quarter: 2013Q3

REPORT INFORMATION
  Report Type: Spontaneous
  Country: GB (occurrence: GB)
  Receive Date: 20130722
  Receipt Date: 20130722
  Transmission Date: 20140515
  Serious: Yes (Other)
  Sender: FDA-Public Use
  Company Number: ALCN2013GB000681

PATIENT
  Age: 84 Year
  Sex: Female

DRUGS (2)
  1. TOBRADEX [Suspect]
     Indication: POSTOPERATIVE CARE
     Dosage: UNK, QID
     Route: 047
     Dates: start: 201201
  2. CEFUROXIME [Concomitant]
     Dosage: UNK
     Dates: start: 201201

REACTIONS (4)
  - Detached Descemet^s membrane [Recovered/Resolved with Sequelae]
  - Corneal opacity [Recovered/Resolved with Sequelae]
  - Corneal oedema [Recovered/Resolved with Sequelae]
  - Visual acuity reduced [Recovered/Resolved with Sequelae]
